FAERS Safety Report 20108342 (Version 1)
Quarter: 2021Q4

REPORT INFORMATION
  Report Type: Spontaneous
  Country: US (occurrence: None)
  Receive Date: 20211123
  Receipt Date: 20211123
  Transmission Date: 20220304
  Serious: Yes (Death)
  Sender: FDA-Public Use
  Company Number: None

PATIENT
  Age: 63 Year
  Sex: Female
  Weight: 99 kg

DRUGS (1)
  1. OCREVUS [Suspect]
     Active Substance: OCRELIZUMAB
     Indication: Multiple sclerosis
     Dosage: OTHER FREQUENCY : EVERY 6 MONTHS;?
     Route: 041
     Dates: start: 20191230, end: 20210802

REACTIONS (2)
  - COVID-19 pneumonia [None]
  - Respiratory failure [None]

NARRATIVE: CASE EVENT DATE: 20211121
